FAERS Safety Report 6886157-1 (Version None)
Quarter: 2010Q3

REPORT INFORMATION
  Report Type: 
  Country: None (occurrence: None)
  Receive Date: 20100729
  Receipt Date: 20080406
  Transmission Date: 20110219
  Serious: No
  Sender: FDA-Public Use
  Company Number: US-PFIZER INC-2008030544

PATIENT
  Sex: Female
  Weight: 63.5 kg

DRUGS (3)
  1. CELEBREX [Suspect]
     Indication: PAIN IN EXTREMITY
     Route: 048
     Dates: end: 20080404
  2. ZOLOFT [Concomitant]
  3. ZOCOR [Concomitant]

REACTIONS (3)
  - EYE ALLERGY [None]
  - EYE INFECTION [None]
  - EYE SWELLING [None]
